FAERS Safety Report 6200660-9 (Version None)
Quarter: 2009Q2

REPORT INFORMATION
  Report Type: 
  Country: None (occurrence: None)
  Receive Date: 20090522
  Receipt Date: 20090513
  Transmission Date: 20091009
  Serious: Yes (Hospitalization)
  Sender: FDA-Public Use
  Company Number: GB-GENENTECH-283207

PATIENT
  Age: 84 Year
  Sex: Female

DRUGS (1)
  1. AVASTIN [Suspect]
     Indication: DIABETIC RETINAL OEDEMA
     Dosage: 1.25 MG, UNK
     Route: 031
     Dates: start: 20090324

REACTIONS (2)
  - HAEMORRHAGE [None]
  - TOXIC ANTERIOR SEGMENT SYNDROME [None]
